FAERS Safety Report 6663537-0 (Version None)
Quarter: 2010Q2

REPORT INFORMATION
  Report Type: 
  Country: None (occurrence: None)
  Receive Date: 20100401
  Receipt Date: 20100323
  Transmission Date: 20101027
  Serious: Yes (Hospitalization, Other)
  Sender: FDA-Public Use
  Company Number: US-PFIZER INC-2010002854

PATIENT
  Sex: Male
  Weight: 77.1 kg

DRUGS (11)
  1. SUTENT [Suspect]
     Indication: METASTATIC RENAL CELL CARCINOMA
     Dosage: 50 MG, 1X/DAY, 4 WEEKS ON/2WEEKS OFF
     Route: 048
     Dates: start: 20090727, end: 20100124
  2. SUTENT [Suspect]
     Dosage: 37.5 MG (12.5MGX3 CAPS), 1X/DAY (4 WEEKS ON/2WEEKS OFF)
     Route: 048
     Dates: start: 20100302
  3. COMPAZINE [Concomitant]
     Dosage: UNK
  4. OMEPRAZOLE [Concomitant]
     Dosage: UNK
  5. ALLOPURINOL [Concomitant]
     Dosage: UNK
  6. NORVASC [Concomitant]
     Dosage: UNK
  7. VICODIN [Concomitant]
     Dosage: UNK
  8. SIMVASTATIN/NIACIN [Concomitant]
     Dosage: UNK
  9. PLAVIX [Concomitant]
     Dosage: UNK
  10. ASPIRIN [Concomitant]
     Dosage: UNK
  11. ATIVAN [Concomitant]
     Dosage: UNK

REACTIONS (6)
  - ANAEMIA [None]
  - ARTHRALGIA [None]
  - ASTHENIA [None]
  - BRONCHITIS [None]
  - FEBRILE NEUTROPENIA [None]
  - JOINT SWELLING [None]
